FAERS Safety Report 6405736-9 (Version None)
Quarter: 2009Q4

REPORT INFORMATION
  Report Type: 
  Country: None (occurrence: None)
  Receive Date: 20091014
  Receipt Date: 20091002
  Transmission Date: 20100525
  Serious: Yes (Other)
  Sender: FDA-Public Use
  Company Number: 230373J09USA

PATIENT
  Age: 55 Year
  Sex: Female
  Weight: 65 kg

DRUGS (7)
  1. REBIF [Suspect]
     Indication: MULTIPLE SCLEROSIS
     Dosage: 44 MCG, 3 IN 1 WEEKS, SUBCUTANEOUS
     Route: 058
     Dates: start: 20080123
  2. ALPRAZOLAM [Concomitant]
  3. CLONAZEPAM [Concomitant]
  4. BACLOFEN [Concomitant]
  5. VITAMIN B12 [Concomitant]
  6. LYRICA [Concomitant]
  7. KAPIDEX (ALL OTHER THERAPEUTIC PRODUCTS) [Concomitant]

REACTIONS (5)
  - ABDOMINAL DISTENSION [None]
  - ABDOMINAL PAIN [None]
  - INTESTINAL FUNCTIONAL DISORDER [None]
  - MENINGIOMA [None]
  - MUSCLE SPASMS [None]
